FAERS Safety Report 10248842 (Version 1)
Quarter: 2014Q2

REPORT INFORMATION
  Report Type: Spontaneous
  Country: CA (occurrence: CA)
  Receive Date: 20140620
  Receipt Date: 20140620
  Transmission Date: 20141212
  Serious: Yes (Other)
  Sender: FDA-Public Use
  Company Number: CA-009507513-1406CAN008753

PATIENT
  Sex: Female

DRUGS (3)
  1. VICTRELIS [Suspect]
     Indication: CHRONIC HEPATITIS C
     Dosage: 800 MG, 3 IN 1 DAY
     Route: 048
     Dates: end: 201405
  2. COPEGUS [Suspect]
     Indication: CHRONIC HEPATITIS C
     Dosage: 1200 MG/DAY; 42 TABLET/WEEK
     Route: 048
     Dates: start: 20140502, end: 201405
  3. PEGASYS [Suspect]
     Indication: CHRONIC HEPATITIS C
     Dosage: 180 MICROGRAM, 1 IN 1 WEEK, 0.5 ML, PREFILLED SYRINGE
     Route: 058
     Dates: start: 20140502, end: 201405

REACTIONS (2)
  - Oxygen saturation decreased [Unknown]
  - Fatigue [Not Recovered/Not Resolved]
